FAERS Safety Report 5938315-8 (Version None)
Quarter: 2008Q4

REPORT INFORMATION
  Report Type: 
  Country: None (occurrence: None)
  Receive Date: 20081103
  Receipt Date: 20081028
  Transmission Date: 20090506
  Serious: Yes (Hospitalization)
  Sender: FDA-Public Use
  Company Number: GB-TEVA-179645ISR

PATIENT
  Age: 78 Year
  Sex: Female

DRUGS (2)
  1. DOXAZOSIN MESYLATE [Suspect]
     Route: 048
  2. PERINDOPRIL [Suspect]
     Route: 048

REACTIONS (1)
  - ATRIAL FIBRILLATION [None]
